FAERS Safety Report 5598351-0 (Version None)
Quarter: 2008Q1

REPORT INFORMATION
  Report Type: 
  Country: None (occurrence: None)
  Receive Date: 20080116
  Receipt Date: 20080104
  Transmission Date: 20080703
  Serious: Yes (Death, Hospitalization, Other)
  Sender: FDA-Public Use
  Company Number: 2008BI000341

PATIENT
  Age: 59 Year
  Sex: Female
  Weight: 56.6996 kg

DRUGS (1)
  1. AVONEX [Suspect]
     Indication: MULTIPLE SCLEROSIS

REACTIONS (8)
  - CHOLECYSTECTOMY [None]
  - COLLAPSE OF LUNG [None]
  - COMPUTERISED TOMOGRAM ABNORMAL [None]
  - DUODENAL NEOPLASM [None]
  - DUODENAL STENOSIS [None]
  - PAIN [None]
  - POST PROCEDURAL COMPLICATION [None]
  - VOMITING [None]
